FAERS Safety Report 9495371 (Version 2)
Quarter: 2014Q1

REPORT INFORMATION
  Report Type: Spontaneous
  Country: JP (occurrence: JP)
  Receive Date: 20130903
  Receipt Date: 20140102
  Transmission Date: 20141002
  Serious: Yes (Hospitalization)
  Sender: FDA-Public Use
  Company Number: JP-GLAXOSMITHKLINE-B0919269A

PATIENT
  Age: 65 Year
  Sex: Female

DRUGS (7)
  1. LAMICTAL [Suspect]
     Indication: BIPOLAR DISORDER
     Dosage: 25MG PER DAY
     Route: 048
     Dates: start: 20120720, end: 20120809
  2. LAMICTAL [Suspect]
     Indication: BIPOLAR DISORDER
     Dosage: 25MG PER DAY
     Route: 048
     Dates: start: 20120810, end: 20120905
  3. LIMAS [Concomitant]
     Indication: BIPOLAR DISORDER
     Dosage: 200MG PER DAY
     Route: 048
  4. VALERIN [Concomitant]
     Indication: BIPOLAR DISORDER
     Dosage: 100MG PER DAY
     Route: 048
  5. WYPAX [Concomitant]
     Indication: BIPOLAR DISORDER
     Dosage: 1MG PER DAY
     Route: 048
  6. BENZALIN [Concomitant]
     Indication: BIPOLAR DISORDER
     Dosage: 10MG PER DAY
     Route: 048
  7. DESYREL [Concomitant]
     Indication: BIPOLAR DISORDER
     Dosage: 50MG PER DAY
     Route: 048

REACTIONS (9)
  - Drug eruption [Recovered/Resolved]
  - Pyrexia [Unknown]
  - Rash [Unknown]
  - Erythema [Unknown]
  - Face oedema [Unknown]
  - Lip erosion [Unknown]
  - Hepatic function abnormal [Unknown]
  - Eosinophil count increased [Unknown]
  - Malaise [Unknown]
